FAERS Safety Report 7469118-3 (Version None)
Quarter: 2011Q2

REPORT INFORMATION
  Report Type: 
  Country: None (occurrence: None)
  Receive Date: 20110510
  Receipt Date: 20110427
  Transmission Date: 20111010
  Serious: Yes (Hospitalization)
  Sender: FDA-Public Use
  Company Number: JP-ELI_LILLY_AND_COMPANY-JP201103007404

PATIENT
  Sex: Male

DRUGS (9)
  1. SENNOSIDE [Concomitant]
     Dosage: 12 MG, TID
  2. MAGNESIUM OXIDE [Concomitant]
     Dosage: 2 MG, TID
  3. LENDORMIN [Concomitant]
     Dosage: 0.25 MG, QD
     Route: 048
     Dates: end: 20110315
  4. PANTOSIN [Concomitant]
     Dosage: 600 MG, TID
     Route: 048
  5. ZYPREXA [Suspect]
     Dosage: 10MG, 5MG, BID
     Route: 048
     Dates: start: 20110316, end: 20110317
  6. ZYPREXA [Suspect]
     Dosage: 10 MG, QD
     Route: 048
     Dates: start: 20110318, end: 20110322
  7. RISPERDAL [Concomitant]
     Dosage: 8 MG, QD
     Dates: start: 20031101
  8. ZYPREXA [Suspect]
     Indication: SCHIZOPHRENIA
     Dosage: 10 MG, BID
     Route: 048
     Dates: start: 20031101, end: 20110315
  9. ZYPREXA [Suspect]
     Dosage: 5 MG, QD
     Route: 048
     Dates: start: 20110323, end: 20110330

REACTIONS (2)
  - NEUTROPHIL COUNT DECREASED [None]
  - WHITE BLOOD CELL COUNT DECREASED [None]
